FAERS Safety Report 6360768-4 (Version None)
Quarter: 2009Q3

REPORT INFORMATION
  Report Type: 
  Country: None (occurrence: None)
  Receive Date: 20090918
  Receipt Date: 20090910
  Transmission Date: 20100115
  Serious: Yes (Other)
  Sender: FDA-Public Use
  Company Number: US-JNJFOC-20090904385

PATIENT
  Sex: Female

DRUGS (2)
  1. TAPENTADOL HYDROCHLORIDE [Suspect]
     Indication: PAIN
     Route: 048
  2. DEPAKOTE [Concomitant]
     Indication: CONVULSION

REACTIONS (3)
  - ACTIVITIES OF DAILY LIVING IMPAIRED [None]
  - MEMORY IMPAIRMENT [None]
  - THINKING ABNORMAL [None]
